FAERS Safety Report 7233147-5 (Version None)
Quarter: 2011Q1

REPORT INFORMATION
  Report Type: 
  Country: None (occurrence: None)
  Receive Date: 20110107
  Receipt Date: 20101230
  Transmission Date: 20110831
  Serious: Yes (Hospitalization)
  Sender: FDA-Public Use
  Company Number: 0215282

PATIENT
  Age: 62 Year
  Sex: Male

DRUGS (1)
  1. TACHOSIL [Suspect]
     Indication: PNEUMOTHORAX
     Dosage: 1 SPONGE 5 X 5 CM TOPICAL
     Route: 061
     Dates: start: 20100101, end: 20100101

REACTIONS (3)
  - DRUG INEFFECTIVE [None]
  - GRAFT COMPLICATION [None]
  - PNEUMOTHORAX [None]
